FAERS Safety Report 16235938 (Version 1)
Quarter: 2019Q2

REPORT INFORMATION
  Report Type: Report from Study
  Country: None (occurrence: US)
  Receive Date: 20190425
  Receipt Date: 20190425
  Transmission Date: 20190711
  Serious: Yes (Other)
  Sender: FDA-Public Use
  Company Number: US-ABBVIE-19K-163-2753017-00

PATIENT
  Age: 27 Year
  Sex: Male

DRUGS (4)
  1. HUMIRA [Suspect]
     Active Substance: ADALIMUMAB
     Indication: INTESTINAL OBSTRUCTION
     Route: 058
     Dates: start: 20180724
  2. PROGRAF [Concomitant]
     Active Substance: TACROLIMUS\TACROLIMUS ANHYDROUS
     Indication: PRODUCT USED FOR UNKNOWN INDICATION
  3. HUMIRA [Suspect]
     Active Substance: ADALIMUMAB
     Indication: CROHN^S DISEASE
  4. PREDNISONE. [Concomitant]
     Active Substance: PREDNISONE
     Indication: PRODUCT USED FOR UNKNOWN INDICATION

REACTIONS (6)
  - Intestinal resection [Not Recovered/Not Resolved]
  - Decreased appetite [Not Recovered/Not Resolved]
  - Pyrexia [Not Recovered/Not Resolved]
  - Diarrhoea [Not Recovered/Not Resolved]
  - Haematocrit decreased [Not Recovered/Not Resolved]
  - Incision site abscess [Not Recovered/Not Resolved]

NARRATIVE: CASE EVENT DATE: 2018
